FAERS Safety Report 24439299 (Version 1)
Quarter: 2024Q4

REPORT INFORMATION
  Report Type: Spontaneous
  Country: GB (occurrence: GB)
  Receive Date: 20241015
  Receipt Date: 20241015
  Transmission Date: 20250114
  Serious: Yes (Hospitalization, Other)
  Sender: PFIZER
  Company Number: None

PATIENT
  Age: 66 Year

DRUGS (1)
  1. AZITHROMYCIN [Suspect]
     Active Substance: AZITHROMYCIN
     Dosage: UNK

REACTIONS (3)
  - Anaphylactic shock [Recovered/Resolved]
  - Hallucination [Unknown]
  - Rash morbilliform [Unknown]

NARRATIVE: CASE EVENT DATE: 20130101
